FAERS Safety Report 10209866 (Version 3)
Quarter: 2014Q2

REPORT INFORMATION
  Report Type: Report from Study
  Country: CA (occurrence: CA)
  Receive Date: 20140602
  Receipt Date: 20140616
  Transmission Date: 20141212
  Serious: Yes (Other)
  Sender: FDA-Public Use
  Company Number: CA-ROCHE-1302537

PATIENT
  Age: 83 Year
  Sex: Female
  Weight: 36.32 kg

DRUGS (13)
  1. RITUXAN [Suspect]
     Indication: RHEUMATOID ARTHRITIS
     Route: 042
     Dates: start: 20120614, end: 20120627
  2. ACTEMRA [Suspect]
     Indication: RHEUMATOID ARTHRITIS
     Route: 042
     Dates: start: 20131204, end: 20140423
  3. ACETAMINOPHEN [Concomitant]
     Route: 048
     Dates: start: 20120614, end: 20120627
  4. DIPHENHYDRAMINE HYDROCHLORIDE [Concomitant]
     Route: 048
     Dates: start: 20120614, end: 20120627
  5. PINDOLOL [Concomitant]
  6. PLENDIL [Concomitant]
  7. RAMIPRIL [Concomitant]
  8. FOLIC ACID [Concomitant]
  9. LOSEC [Concomitant]
  10. ASPIRIN [Concomitant]
  11. QUININE [Concomitant]
  12. METHOTREXATE [Concomitant]
  13. METHYLPREDNISOLONE [Concomitant]
     Route: 042
     Dates: start: 20120614, end: 20120627

REACTIONS (6)
  - Fall [Unknown]
  - Neutropenia [Unknown]
  - Upper limb fracture [Recovering/Resolving]
  - Wrist fracture [Unknown]
  - Concussion [Recovering/Resolving]
  - Rib fracture [Recovering/Resolving]
